FAERS Safety Report 6091287-0 (Version None)
Quarter: 2009Q1

REPORT INFORMATION
  Report Type: 
  Country: None (occurrence: None)
  Receive Date: 20090220
  Receipt Date: 20090220
  Transmission Date: 20090719
  Serious: Yes (Other)
  Sender: FDA-Public Use
  Company Number: None

PATIENT
  Age: 52 Year
  Sex: Male

DRUGS (1)
  1. CITALOPRAM HYDROBROMIDE [Suspect]
     Indication: DEPRESSION
     Dosage: 1 TABLET DAILY ABOUT 4 DAYS, THEN ABOUT 2 MORE DAYS

REACTIONS (3)
  - EYE PAIN [None]
  - MALAISE [None]
  - TENSION [None]
